FAERS Safety Report 10305965 (Version 1)
Quarter: 2014Q3

REPORT INFORMATION
  Report Type: Spontaneous
  Country: US (occurrence: None)
  Receive Date: 20140714
  Receipt Date: 20140714
  Transmission Date: 20150326
  Serious: Yes (Disabling)
  Sender: FDA-Public Use
  Company Number: None

PATIENT
  Age: 62 Year
  Sex: Female
  Weight: 66.68 kg

DRUGS (1)
  1. PREDNISONE. [Suspect]
     Active Substance: PREDNISONE
     Indication: EPIDURAL INJECTION

REACTIONS (3)
  - Gait disturbance [None]
  - Hormone level abnormal [None]
  - Adrenal insufficiency [None]

NARRATIVE: CASE EVENT DATE: 20140101
